FAERS Safety Report 8610287-7 (Version None)
Quarter: 2012Q3

REPORT INFORMATION
  Report Type: 
  Country: None (occurrence: None)
  Receive Date: 20120810
  Receipt Date: 20120810
  Transmission Date: 20120928
  Serious: Yes (Hospitalization, Other)
  Sender: FDA-Public Use
  Company Number: None

PATIENT
  Age: 52 Year
  Sex: Female
  Weight: 53.5244 kg

DRUGS (2)
  1. TELAPREVIR 375 MG VERTEX [Suspect]
     Indication: HEPATITIS C
     Dosage: 2 TAB TID PO
     Route: 048
     Dates: start: 20120316, end: 20120604
  2. PEGASYS [Suspect]
     Indication: HEPATITIS C
     Dosage: 135MCG/ 400MG SQ WEEKLY/PO DAILY
     Route: 050
     Dates: start: 20120316, end: 20120604

REACTIONS (1)
  - DRUG RASH WITH EOSINOPHILIA AND SYSTEMIC SYMPTOMS [None]
